FAERS Safety Report 9624303 (Version 2)
Quarter: 2013Q4

REPORT INFORMATION
  Report Type: Spontaneous
  Country: US (occurrence: US)
  Receive Date: 20131015
  Receipt Date: 20131107
  Transmission Date: 20140711
  Serious: No
  Sender: FDA-Public Use
  Company Number: US-009507513-1310USA000295

PATIENT
  Sex: Male
  Weight: 90.25 kg

DRUGS (3)
  1. VICTRELIS [Suspect]
     Indication: HEPATITIS C
     Dosage: 200MG /4 CAPSULES /THREE TIMES A DAY.
     Route: 048
     Dates: start: 201308
  2. RIBASPHERE [Suspect]
  3. PEGASYS [Suspect]

REACTIONS (1)
  - Diarrhoea [Recovered/Resolved]
